FAERS Safety Report 25315716 (Version 1)
Quarter: 2025Q2

REPORT INFORMATION
  Report Type: Spontaneous
  Country: US (occurrence: US)
  Receive Date: 20250515
  Receipt Date: 20250515
  Transmission Date: 20250717
  Serious: Yes (Death)
  Sender: ALEXION PHARMACEUTICALS
  Company Number: US-AstraZeneca-CH-00867854A

PATIENT
  Age: 76 Year

DRUGS (2)
  1. WAINUA [Suspect]
     Active Substance: EPLONTERSEN
     Indication: Acquired ATTR amyloidosis
  2. ATTRUBY [Concomitant]
     Active Substance: ACORAMIDIS HYDROCHLORIDE
     Route: 065

REACTIONS (1)
  - Cardiac disorder [Fatal]
